FAERS Safety Report 15841291 (Version 1)
Quarter: 2019Q1

REPORT INFORMATION
  Report Type: Report from Study
  Country: US (occurrence: US)
  Receive Date: 20190118
  Receipt Date: 20190118
  Transmission Date: 20190417
  Serious: Yes (Disabling, Other)
  Sender: FDA-Public Use
  Company Number: US-IPSEN BIOPHARMACEUTICALS, INC.-2018-19723

PATIENT
  Age: 5 Year
  Sex: Male
  Weight: 15 kg

DRUGS (1)
  1. DYSPORT [Suspect]
     Active Substance: ABOBOTULINUMTOXINA
     Indication: MUSCLE SPASTICITY
     Dosage: INJECTIONS IN HAMSTRINGS, BILATERAL
     Dates: start: 20181016, end: 20181016

REACTIONS (3)
  - Off label use [Unknown]
  - Overdose [Unknown]
  - Neuromuscular toxicity [Recovered/Resolved]

NARRATIVE: CASE EVENT DATE: 20181016
